FAERS Safety Report 19565184 (Version 1)
Quarter: 2021Q3

REPORT INFORMATION
  Report Type: Spontaneous
  Country: GB (occurrence: GB)
  Receive Date: 20210716
  Receipt Date: 20210716
  Transmission Date: 20211014
  Serious: Yes (Hospitalization, Other)
  Sender: FDA-Public Use
  Company Number: GB-GILEAD-2021-0540093

PATIENT
  Age: 48 Year
  Sex: Male

DRUGS (7)
  1. EPCLUSA [Suspect]
     Active Substance: SOFOSBUVIR\VELPATASVIR
     Dosage: 1 DOSAGE FORM, QD
     Route: 048
     Dates: start: 20210709
  2. PREGABALIN. [Concomitant]
     Active Substance: PREGABALIN
  3. EPCLUSA [Suspect]
     Active Substance: SOFOSBUVIR\VELPATASVIR
     Indication: HEPATITIS C
     Dosage: 1 DOSAGE FORM, QD
     Route: 048
     Dates: start: 202106, end: 202106
  4. CODEINE [Concomitant]
     Active Substance: CODEINE
  5. MIRTAZEPINE TEVA [Concomitant]
     Active Substance: MIRTAZAPINE
  6. METHADONE [Concomitant]
     Active Substance: METHADONE HYDROCHLORIDE
  7. DALTEPARIN [Concomitant]
     Active Substance: DALTEPARIN

REACTIONS (2)
  - Back pain [Unknown]
  - Intentional dose omission [Recovered/Resolved]
